FAERS Safety Report 12080300 (Version 1)
Quarter: 2016Q1

REPORT INFORMATION
  Report Type: Report from Study
  Country: US (occurrence: US)
  Receive Date: 20160216
  Receipt Date: 20160216
  Transmission Date: 20160526
  Serious: Yes (Hospitalization, Other)
  Sender: FDA-Public Use
  Company Number: US-JNJFOC-20160123281

PATIENT
  Age: 85 Year
  Sex: Female
  Weight: 53 kg

DRUGS (2)
  1. IBRUTINIB [Suspect]
     Active Substance: IBRUTINIB
     Indication: CENTRAL NERVOUS SYSTEM LYMPHOMA
     Route: 048
     Dates: start: 20160107, end: 20160118
  2. IBRUTINIB [Suspect]
     Active Substance: IBRUTINIB
     Indication: CENTRAL NERVOUS SYSTEM LYMPHOMA
     Route: 048
     Dates: start: 20160129, end: 20160203

REACTIONS (7)
  - Sepsis [Recovering/Resolving]
  - Aspartate aminotransferase increased [Recovered/Resolved]
  - Cholecystitis [Not Recovered/Not Resolved]
  - Blood bilirubin increased [Recovered/Resolved]
  - Colitis [Not Recovered/Not Resolved]
  - Blood alkaline phosphatase increased [Recovered/Resolved]
  - Alanine aminotransferase increased [Recovering/Resolving]

NARRATIVE: CASE EVENT DATE: 20160118
